FAERS Safety Report 8922426 (Version 1)
Quarter: 2012Q4

REPORT INFORMATION
  Report Type: 
  Country: MX (occurrence: MX)
  Receive Date: 20121123
  Receipt Date: 20121123
  Transmission Date: 20130627
  Serious: Yes (Other)
  Sender: FDA-Public Use
  Company Number: MX-BAYER-2012-122557

PATIENT
  Sex: Female

DRUGS (1)
  1. CANESTEN VAGINAL CREAM [Suspect]
     Dosage: UNK
     Route: 067

REACTIONS (1)
  - Vaginal haemorrhage [Unknown]
